FAERS Safety Report 8096499 (Version 2)
Quarter: 2012Q4

REPORT INFORMATION
  Report Type: 
  Country: US (occurrence: US)
  Receive Date: 20110818
  Receipt Date: 20120927
  Transmission Date: 20130627
  Serious: Yes (Hospitalization)
  Sender: FDA-Public Use
  Company Number: US-GLAXOSMITHKLINE-A0941266A

PATIENT
  Age: 81 Year
  Sex: Female
  Weight: 61.7 kg

DRUGS (19)
  1. MELPHALAN [Suspect]
     Indication: MULTIPLE MYELOMA
     Dosage: 14MG Cyclic
     Route: 048
  2. PREDNISONE [Suspect]
     Indication: PRODUCT USED FOR UNKNOWN INDICATION
     Route: 065
  3. AMIODARONE [Concomitant]
  4. AUGMENTIN [Concomitant]
  5. FLUCONAZOLE [Concomitant]
  6. LASIX [Concomitant]
  7. NEURONTIN [Concomitant]
  8. LEVAQUIN [Concomitant]
  9. SYNTHROID [Concomitant]
  10. METOPROLOL [Concomitant]
  11. MULTIVITAMIN [Concomitant]
  12. PRILOSEC [Concomitant]
  13. POTASSIUM [Concomitant]
  14. LYRICA [Concomitant]
  15. MUCINEX [Concomitant]
  16. VALTREX [Concomitant]
  17. ALBUTEROL [Concomitant]
  18. HYDROCODONE [Concomitant]
  19. ROBITUSSIN [Concomitant]

REACTIONS (4)
  - Pneumonia [Recovered/Resolved]
  - Cough [Recovered/Resolved]
  - Ill-defined disorder [Recovered/Resolved]
  - Aspiration [Recovered/Resolved]
